FAERS Safety Report 5876007-4 (Version None)
Quarter: 2008Q3

REPORT INFORMATION
  Report Type: 
  Country: None (occurrence: None)
  Receive Date: 20080905
  Receipt Date: 20080822
  Transmission Date: 20090109
  Serious: Yes (Hospitalization)
  Sender: FDA-Public Use
  Company Number: IDA-00128

PATIENT
  Age: 70 Year
  Sex: Female

DRUGS (4)
  1. INDERAL [Suspect]
     Dosage: 10 MG QD ORAL FORMULATION: TABLET
     Route: 048
  2. LULLAN (PEROSPIRONE HYDROCHLORIDE) [Suspect]
     Indication: AUTONOMIC NERVOUS SYSTEM IMBALANCE
     Dosage: 0.4 MG QD ORAL  FORMULATION: TABLET
     Route: 048
  3. ANAFRANIL [Suspect]
     Dosage: 10 MG QD   ORAL  FORMULATION: TABLET
     Route: 048
  4. DIART (AZOSEMIDE) [Concomitant]

REACTIONS (1)
  - PNEUMONIA [None]
